FAERS Safety Report 4592564-2 (Version None)
Quarter: 2005Q1

REPORT INFORMATION
  Report Type: 
  Country: None (occurrence: None)
  Receive Date: 20050222
  Receipt Date: 20050204
  Transmission Date: 20050727
  Serious: Yes (Hospitalization)
  Sender: FDA-Public Use
  Company Number: 2005AP00991

PATIENT
  Age: 20 Year
  Sex: Female

DRUGS (8)
  1. MEROPENEM [Suspect]
     Dosage: 500 MG ONCE IV
     Route: 042
     Dates: start: 20031128
  2. LIGNOCAINE [Suspect]
     Dosage: 2 ML ONCE
     Dates: start: 20031128
  3. CYCLOSPORINE [Suspect]
     Dosage: 200 MG ONCE PO
     Route: 048
     Dates: start: 20031128
  4. AZATHIOPRINE [Suspect]
     Dosage: 150 MG ONCE PO
     Route: 048
     Dates: start: 20031128
  5. PREDNISOLONE [Suspect]
  6. SIROLIMUS [Suspect]
     Dosage: 5 MG DAILY PO
     Route: 048
     Dates: start: 20031130
  7. MYCOPHENOLATE MOFETIL [Suspect]
     Dosage: 3 G DAILY PO
     Route: 048
     Dates: start: 20031128
  8. GANCICLOVIR [Suspect]
     Dosage: 3 G DAILY
     Dates: start: 20031128

REACTIONS (10)
  - COLD SWEAT [None]
  - FEELING HOT [None]
  - HYPOXIA [None]
  - MUSCLE RIGIDITY [None]
  - MYDRIASIS [None]
  - NAUSEA [None]
  - PALLOR [None]
  - POSTOPERATIVE INFECTION [None]
  - SEPSIS [None]
  - TRANSPLANT REJECTION [None]
